FAERS Safety Report 5424751-5 (Version None)
Quarter: 2007Q3

REPORT INFORMATION
  Report Type: 
  Country: None (occurrence: None)
  Receive Date: 20070725
  Receipt Date: 20061114
  Transmission Date: 20080115
  Serious: Yes (Death)
  Sender: FDA-Public Use
  Company Number: USA-2006-0025737

PATIENT
  Age: 20 Year
  Sex: Female
  Weight: 72.6 kg

DRUGS (3)
  1. MORPHINE SULFATE [Suspect]
     Indication: DRUG ABUSER
     Dosage: SEE TEXT
  2. OPIOIDS [Suspect]
     Indication: DRUG ABUSER
     Dosage: SEE TEXT
  3. COCAINE (COCAINE) [Suspect]
     Indication: DRUG ABUSER
     Dosage: SEE TEXT

REACTIONS (1)
  - ACCIDENTAL OVERDOSE [None]
